FAERS Safety Report 8401445-5 (Version None)
Quarter: 2012Q2

REPORT INFORMATION
  Report Type: 
  Country: None (occurrence: None)
  Receive Date: 20120601
  Receipt Date: 20120528
  Transmission Date: 20120825
  Serious: Yes (Life-Threatening)
  Sender: FDA-Public Use
  Company Number: IT-EISAI INC-E7389-01035-CLI-IT

PATIENT
  Sex: Male
  Weight: 94 kg

DRUGS (39)
  1. PEMETREXED [Suspect]
     Indication: NON-SMALL CELL LUNG CANCER
     Route: 041
     Dates: start: 20100915, end: 20101013
  2. DEXAMETHASONE [Concomitant]
     Route: 048
     Dates: start: 20100720, end: 20100721
  3. LEVOFLOXACIN [Concomitant]
     Route: 048
     Dates: start: 20100819, end: 20100823
  4. PEMETREXED [Suspect]
     Route: 041
     Dates: start: 20101116, end: 20101209
  5. PEMETREXED [Suspect]
     Route: 041
     Dates: start: 20100721
  6. DEXAMETHASONE [Concomitant]
     Route: 048
     Dates: start: 20100810, end: 20100810
  7. COLONY STIMULATING FACTOR [Concomitant]
     Route: 058
     Dates: start: 20100924, end: 20100926
  8. EPOETIN ALFA [Concomitant]
     Route: 042
     Dates: start: 20100922, end: 20100922
  9. EPOETIN ALFA [Concomitant]
     Route: 042
     Dates: start: 20100928, end: 20100928
  10. AUGUMENTIN [Concomitant]
     Route: 048
     Dates: start: 20100827, end: 20100910
  11. EPIRUBICIN HYDROCHLORIDE [Suspect]
     Indication: NON-SMALL CELL LUNG CANCER
     Route: 041
     Dates: start: 20100721, end: 20101209
  12. FLUCONAZOLE [Concomitant]
     Route: 048
     Dates: start: 20100819, end: 20100823
  13. PANTOPRAZOLE [Concomitant]
     Route: 048
     Dates: start: 20100831
  14. INTRAFER [Concomitant]
     Route: 048
     Dates: start: 20101013, end: 20101013
  15. EPOETIN ALFA [Concomitant]
     Route: 058
     Dates: start: 20100907, end: 20100907
  16. EPOETIN ALFA [Concomitant]
     Route: 042
     Dates: start: 20101005, end: 20101005
  17. POTASSIUM CHLORIDE [Concomitant]
     Route: 048
     Dates: start: 20100928
  18. PREGABALIN [Concomitant]
     Indication: PAIN
     Route: 048
     Dates: start: 20100622
  19. OMEPRAZOLE [Concomitant]
     Route: 048
     Dates: start: 20100622, end: 20100707
  20. RANITIDINE [Concomitant]
     Route: 042
     Dates: start: 20100721, end: 20100721
  21. POLASE [Concomitant]
     Indication: DEHYDRATION
     Route: 048
     Dates: start: 20100820, end: 20100825
  22. GRANISETRON [Concomitant]
     Indication: ANTIEMETIC SUPPORTIVE CARE
     Route: 042
     Dates: start: 20100721, end: 20100721
  23. INTRAFER [Concomitant]
     Route: 048
     Dates: start: 20101005, end: 20101005
  24. EPOETIN ALFA [Concomitant]
     Route: 042
     Dates: start: 20100914, end: 20100914
  25. FENTANYL [Concomitant]
     Indication: PAIN
     Route: 048
     Dates: start: 20100622
  26. DEXAMETHASONE [Concomitant]
     Indication: SUPPLEMENTATION THERAPY
     Route: 048
     Dates: start: 20100513, end: 20100707
  27. DEXAMETHASONE [Concomitant]
     Route: 048
     Dates: start: 20100824, end: 20100824
  28. KETOPROFEN [Concomitant]
     Indication: PAIN
     Route: 048
     Dates: start: 20100622, end: 20100721
  29. VITAMIN B-12 [Concomitant]
     Indication: PROPHYLAXIS
     Route: 030
     Dates: start: 20100708, end: 20100708
  30. COLONY STIMULATING FACTOR [Concomitant]
     Route: 058
     Dates: start: 20100924, end: 20100924
  31. INTRAFER [Concomitant]
     Route: 048
     Dates: start: 20100902, end: 20100902
  32. DEXAMETHASONE [Concomitant]
     Route: 048
     Dates: start: 20100914, end: 20100916
  33. FOLIC ACID [Concomitant]
     Indication: PROPHYLAXIS
     Route: 048
     Dates: start: 20100708
  34. RANITIDINE [Concomitant]
     Route: 042
     Dates: start: 20100810, end: 20100810
  35. COLONY STIMULATING FACTOR [Concomitant]
     Indication: NEUTROPENIA
     Route: 058
     Dates: start: 20100819, end: 20100821
  36. FUROSEMIDE [Concomitant]
     Route: 048
     Dates: start: 20100810, end: 20101005
  37. HYDROXYZINE HCL [Concomitant]
     Indication: RASH
     Route: 048
     Dates: start: 20100824
  38. GRANISETRON [Concomitant]
     Route: 042
     Dates: start: 20100810, end: 20100810
  39. EPOETIN ALFA [Concomitant]
     Route: 042
     Dates: start: 20101013, end: 20101013

REACTIONS (2)
  - NEUTROPENIA [None]
  - LEUKOPENIA [None]
